FAERS Safety Report 5356964-5 (Version None)
Quarter: 2007Q3

REPORT INFORMATION
  Report Type: 
  Country: None (occurrence: None)
  Receive Date: 20070614
  Receipt Date: 20070611
  Transmission Date: 20080115
  Serious: Yes (Other)
  Sender: FDA-Public Use
  Company Number: US-BRISTOL-MYERS SQUIBB COMPANY-13722210

PATIENT
  Sex: Male

DRUGS (2)
  1. SUSTIVA [Suspect]
  2. TENOFOVIR DF + EMTRICITABINE [Suspect]

REACTIONS (1)
  - RENAL FAILURE ACUTE [None]
